FAERS Safety Report 13998694 (Version 3)
Quarter: 2017Q4

REPORT INFORMATION
  Report Type: Spontaneous
  Country: FR (occurrence: FR)
  Receive Date: 20170921
  Receipt Date: 20171011
  Transmission Date: 20180321
  Serious: Yes (Hospitalization, Other)
  Sender: FDA-Public Use
  Company Number: FR-BAXTER-2017BAX032865

PATIENT
  Age: 43 Year
  Sex: Male

DRUGS (15)
  1. MABTHERA [Suspect]
     Active Substance: RITUXIMAB
     Dosage: SECOND COURSE
     Route: 042
     Dates: start: 20170808, end: 201708
  2. ZELITREX [Suspect]
     Active Substance: VALACYCLOVIR HYDROCHLORIDE
     Indication: INFECTION PROPHYLAXIS
     Route: 065
     Dates: start: 20170707
  3. ALLOPURINOL. [Suspect]
     Active Substance: ALLOPURINOL
     Indication: TUMOUR LYSIS SYNDROME
     Route: 048
     Dates: start: 20170710, end: 201707
  4. MABTHERA [Suspect]
     Active Substance: RITUXIMAB
     Indication: CHRONIC LYMPHOCYTIC LEUKAEMIA
     Dosage: FIRST COURSE, DAY 1
     Route: 042
     Dates: start: 20170707, end: 20170707
  5. ORACILLINE [Suspect]
     Active Substance: PENICILLIN V
     Indication: INFECTION PROPHYLAXIS
     Route: 048
     Dates: start: 20170707, end: 20170816
  6. ENDOXAN 1000 MG, POUDRE POUR SOLUTIONINJECTABLE [Suspect]
     Active Substance: CYCLOPHOSPHAMIDE
     Indication: CHRONIC LYMPHOCYTIC LEUKAEMIA
     Dosage: FIRST COURSE DAY 3 TO DAY 5
     Route: 042
     Dates: start: 20170709, end: 20170711
  7. CLOXACILLIN [Suspect]
     Active Substance: CLOXACILLIN
     Indication: ADVERSE EVENT
     Dosage: BY INFUSION PUMP WITH A LOADING DOSE OF 2 G
     Route: 065
     Dates: start: 20170831
  8. FLUDARABINE PHOSPHATE. [Suspect]
     Active Substance: FLUDARABINE PHOSPHATE
     Indication: CHRONIC LYMPHOCYTIC LEUKAEMIA
     Dosage: FIRST COURSE DAY 3 TO DAY 5
     Route: 042
     Dates: start: 20170709, end: 20170711
  9. GLYCEROL\PARAFFIN [Suspect]
     Active Substance: GLYCERIN\PARAFFIN
     Indication: ADVERSE EVENT
     Route: 065
     Dates: start: 20170831
  10. FLUDARABINE PHOSPHATE. [Suspect]
     Active Substance: FLUDARABINE PHOSPHATE
     Dosage: SECOND COURSE
     Route: 042
     Dates: start: 20170808, end: 201708
  11. WELLVONE [Suspect]
     Active Substance: ATOVAQUONE
     Indication: PRODUCT USED FOR UNKNOWN INDICATION
     Dosage: RECEIVED TWICE
     Route: 065
     Dates: start: 20170814
  12. BACTRIM [Suspect]
     Active Substance: SULFAMETHOXAZOLE\TRIMETHOPRIM
     Indication: INFECTION PROPHYLAXIS
     Route: 048
     Dates: start: 20170707, end: 20170814
  13. ENDOXAN 1000 MG, POUDRE POUR SOLUTIONINJECTABLE [Suspect]
     Active Substance: CYCLOPHOSPHAMIDE
     Dosage: SECOND COURSE
     Route: 042
     Dates: start: 20170808, end: 201708
  14. MABTHERA [Suspect]
     Active Substance: RITUXIMAB
     Dosage: DAY 2
     Route: 042
     Dates: start: 20170708, end: 20170708
  15. LORATADINE. [Suspect]
     Active Substance: LORATADINE
     Indication: ADVERSE EVENT
     Route: 065
     Dates: start: 20170814, end: 20170831

REACTIONS (16)
  - Skin exfoliation [Recovering/Resolving]
  - Rash erythematous [Unknown]
  - Tumour lysis syndrome [Unknown]
  - Rash maculo-papular [Recovering/Resolving]
  - Mouth haemorrhage [Recovered/Resolved]
  - Toxic skin eruption [Not Recovered/Not Resolved]
  - Rash pustular [Unknown]
  - Staphylococcal infection [Unknown]
  - Acute generalised exanthematous pustulosis [Unknown]
  - Drug intolerance [Unknown]
  - Hypersensitivity vasculitis [Unknown]
  - Purpura [Unknown]
  - Blood creatinine increased [Recovered/Resolved]
  - Thrombocytopenia [Unknown]
  - Pyrexia [Recovered/Resolved]
  - Purpura [Recovering/Resolving]

NARRATIVE: CASE EVENT DATE: 201707
